FAERS Safety Report 7410941-9 (Version None)
Quarter: 2011Q2

REPORT INFORMATION
  Report Type: 
  Country: None (occurrence: None)
  Receive Date: 20110413
  Receipt Date: 20110329
  Transmission Date: 20111010
  Serious: Yes (Hospitalization, Other)
  Sender: FDA-Public Use
  Company Number: US-JNJFOC-20110400082

PATIENT
  Sex: Female
  Weight: 124.29 kg

DRUGS (15)
  1. CYMBALTA [Concomitant]
     Indication: ANXIETY
     Route: 048
  2. ABILIFY [Concomitant]
     Indication: DEPRESSION
     Route: 048
  3. CYMBALTA [Concomitant]
     Indication: POST CONCUSSION SYNDROME
     Route: 048
  4. ABILIFY [Concomitant]
     Indication: POST CONCUSSION SYNDROME
     Route: 048
  5. OXYCODONE [Concomitant]
     Indication: PAIN
     Route: 048
  6. TOPAMAX [Concomitant]
     Indication: ANXIETY
     Route: 048
  7. ABILIFY [Concomitant]
     Indication: ANXIETY
     Route: 048
  8. REMICADE [Suspect]
     Indication: PSORIASIS
     Route: 042
  9. STELARA [Concomitant]
     Indication: PSORIASIS
     Route: 058
  10. CYMBALTA [Concomitant]
     Indication: DEPRESSION
     Route: 048
  11. LEVOXYL [Concomitant]
     Indication: THYROID DISORDER
     Route: 048
  12. DURAGESIC [Suspect]
     Indication: POST-TRAUMATIC PAIN
     Route: 062
  13. TOPAMAX [Concomitant]
     Indication: POST CONCUSSION SYNDROME
     Route: 048
  14. TOPAMAX [Concomitant]
     Indication: DEPRESSION
     Route: 048
  15. XANAX [Concomitant]
     Indication: ANXIETY
     Route: 048

REACTIONS (4)
  - INFUSION RELATED REACTION [None]
  - ERYTHEMA [None]
  - HYPOVENTILATION [None]
  - PANCREATITIS [None]
